FAERS Safety Report 18966865 (Version 2)
Quarter: 2022Q1

REPORT INFORMATION
  Report Type: Spontaneous
  Country: BR (occurrence: BR)
  Receive Date: 20210304
  Receipt Date: 20220117
  Transmission Date: 20220424
  Serious: Yes (Death, Life-Threatening, Hospitalization, Other)
  Sender: FDA-Public Use
  Company Number: BR-LUPIN PHARMACEUTICALS INC.-2021-02618

PATIENT
  Age: 75 Year
  Sex: Male

DRUGS (21)
  1. TRAMADOL [Suspect]
     Active Substance: TRAMADOL
     Indication: Cancer pain
     Dosage: 100 MILLIGRAM
     Route: 048
  2. TRAMADOL [Suspect]
     Active Substance: TRAMADOL
     Dosage: SELF-MEDICATED SEVERAL TIMES A DAY
     Route: 048
  3. TRAMADOL [Suspect]
     Active Substance: TRAMADOL
     Dosage: 100 MILLIGRAM (LATER USED AS TREATMENT DURING HOSPITALISATION)
     Route: 065
  4. POLYETHYLENE GLYCOL [Suspect]
     Active Substance: POLYETHYLENE GLYCOL
     Indication: Gastrointestinal motility disorder
     Dosage: UNK
     Route: 065
     Dates: start: 2020
  5. POLYETHYLENE GLYCOL [Suspect]
     Active Substance: POLYETHYLENE GLYCOL
     Indication: Constipation
  6. METOCLOPRAMIDE [Suspect]
     Active Substance: METOCLOPRAMIDE
     Indication: Gastrointestinal motility disorder
     Dosage: 10 MILLIGRAM, TID
     Route: 042
     Dates: start: 2020
  7. METOCLOPRAMIDE [Suspect]
     Active Substance: METOCLOPRAMIDE
     Indication: Constipation
  8. MORPHINE [Suspect]
     Active Substance: MORPHINE
     Indication: Cancer pain
     Dosage: 3 MILLIGRAM, PER DOSE
     Route: 042
     Dates: start: 2020
  9. MORPHINE [Suspect]
     Active Substance: MORPHINE
     Dosage: 5 MILLIGRAM, QD
     Route: 042
     Dates: start: 2020
  10. MORPHINE [Suspect]
     Active Substance: MORPHINE
     Dosage: HE RECEIVED MORPHINE IN CONTINUOUS INFUSION IN THE LAST FEW DAYS
     Route: 065
  11. LACTULOSE [Suspect]
     Active Substance: LACTULOSE
     Indication: Gastrointestinal motility disorder
     Dosage: UNK
     Route: 048
     Dates: start: 2020
  12. LACTULOSE [Suspect]
     Active Substance: LACTULOSE
     Indication: Constipation
  13. DOMPERIDONE [Suspect]
     Active Substance: DOMPERIDONE
     Indication: Gastrointestinal motility disorder
     Dosage: UNK
     Route: 048
     Dates: start: 2020
  14. DOMPERIDONE [Suspect]
     Active Substance: DOMPERIDONE
     Indication: Constipation
  15. BISACODYL [Suspect]
     Active Substance: BISACODYL
     Indication: Gastrointestinal motility disorder
     Dosage: UNK
     Route: 065
     Dates: start: 2020
  16. BISACODYL [Suspect]
     Active Substance: BISACODYL
     Indication: Constipation
  17. GLYCERIN [Concomitant]
     Active Substance: GLYCERIN
     Indication: Gastrointestinal motility disorder
     Dosage: 500 MILLILITER, QD
     Route: 054
     Dates: start: 2020
  18. METAMIZOLE [Concomitant]
     Active Substance: METAMIZOLE
     Indication: Cancer pain
     Dosage: 100 MILLIGRAM
     Route: 065
     Dates: start: 2020
  19. OMEPRAZOLE [Concomitant]
     Active Substance: OMEPRAZOLE
     Indication: Product used for unknown indication
     Dosage: 40 MILLIGRAM, QD
     Route: 048
  20. ACETAMINOPHEN [Concomitant]
     Active Substance: ACETAMINOPHEN
     Indication: Cancer pain
     Dosage: 500 MILLIGRAM
     Route: 065
     Dates: start: 2020
  21. BROMOPRIDE [Concomitant]
     Active Substance: BROMOPRIDE
     Indication: Gastrointestinal motility disorder
     Dosage: 10 MILLIGRAM
     Route: 048
     Dates: start: 2020

REACTIONS (9)
  - Respiratory failure [Fatal]
  - Toxicity to various agents [Fatal]
  - Depressed level of consciousness [Unknown]
  - Miosis [Unknown]
  - Respiratory depression [Unknown]
  - Gastrointestinal motility disorder [Not Recovered/Not Resolved]
  - Constipation [Not Recovered/Not Resolved]
  - Intentional product misuse [Unknown]
  - Drug ineffective [Unknown]

NARRATIVE: CASE EVENT DATE: 20200101
